FAERS Safety Report 6450478-7 (Version None)
Quarter: 2009Q4

REPORT INFORMATION
  Report Type: 
  Country: None (occurrence: None)
  Receive Date: 20091123
  Receipt Date: 20091109
  Transmission Date: 20100525
  Serious: Yes (Death)
  Sender: FDA-Public Use
  Company Number: JP-SANOFI-AVENTIS-F01200900607

PATIENT
  Age: 78 Year
  Sex: Male
  Weight: 45 kg

DRUGS (4)
  1. CLOPIDOGREL BISULFATE [Suspect]
     Route: 048
     Dates: start: 20090323, end: 20090517
  2. LACTOMIN /OLD FORM/ [Concomitant]
     Route: 048
     Dates: end: 20090517
  3. FAMOTIDINE [Concomitant]
     Route: 048
     Dates: end: 20090517
  4. TETUCUR [Concomitant]
     Route: 048
     Dates: end: 20090517

REACTIONS (1)
  - PNEUMONIA [None]
